FAERS Safety Report 8395320-2 (Version None)
Quarter: 2012Q1

REPORT INFORMATION
  Report Type: 
  Country: None (occurrence: None)
  Receive Date: 20120323
  Receipt Date: 20110228
  Transmission Date: 20120608
  Serious: Yes (Other)
  Sender: FDA-Public Use
  Company Number: 163-21880-11030274

PATIENT
  Age: 60 Year
  Sex: Male
  Weight: 81.6475 kg

DRUGS (7)
  1. DEXAMETHASONE [Concomitant]
  2. REVLIMID [Suspect]
     Indication: MULTIPLE MYELOMA
     Dosage: 25 MG, Q 21 DAYS, PO, 25 MG, X21 DAYS WITH 7 DAYS OFF, PO, 10 MG, DAILY X28 DAYS, PO
     Route: 048
     Dates: start: 20100202
  3. REVLIMID [Suspect]
     Indication: MULTIPLE MYELOMA
     Dosage: 25 MG, Q 21 DAYS, PO, 25 MG, X21 DAYS WITH 7 DAYS OFF, PO, 10 MG, DAILY X28 DAYS, PO
     Route: 048
     Dates: start: 20100801, end: 20110101
  4. REVLIMID [Suspect]
     Indication: MULTIPLE MYELOMA
     Dosage: 25 MG, Q 21 DAYS, PO, 25 MG, X21 DAYS WITH 7 DAYS OFF, PO, 10 MG, DAILY X28 DAYS, PO
     Route: 048
     Dates: start: 20100301
  5. ASPIRIN [Concomitant]
  6. ZOMETA [Concomitant]
  7. FISH OIL (FISH OIL) [Concomitant]

REACTIONS (1)
  - PROTEIN TOTAL INCREASED [None]
